FAERS Safety Report 6911109-2 (Version None)
Quarter: 2010Q3

REPORT INFORMATION
  Report Type: 
  Country: None (occurrence: None)
  Receive Date: 20100806
  Receipt Date: 20100723
  Transmission Date: 20110219
  Serious: Yes (Other)
  Sender: FDA-Public Use
  Company Number: CA-GENENTECH-298711

PATIENT
  Sex: Male
  Weight: 36.9 kg

DRUGS (5)
  1. XOLAIR [Suspect]
     Indication: ASTHMA
     Dosage: 300 MG, Q2W
     Route: 058
     Dates: start: 20080124
  2. XOLAIR [Suspect]
     Dosage: 300 MG, Q2W
     Route: 058
     Dates: start: 20091127
  3. XOLAIR [Suspect]
     Dosage: 300 MG, Q2W
     Route: 058
     Dates: start: 20100319
  4. ZITHROMAX [Concomitant]
     Indication: PRODUCT USED FOR UNKNOWN INDICATION
     Dosage: UNK
     Route: 065
     Dates: start: 20090511, end: 20090513
  5. AVELOX [Concomitant]
     Indication: PRODUCT USED FOR UNKNOWN INDICATION
     Dosage: 400 MG, 7/WEEK
     Route: 065

REACTIONS (12)
  - ABDOMINAL DISCOMFORT [None]
  - ACUTE SINUSITIS [None]
  - ASTHMA [None]
  - EYE IRRITATION [None]
  - INFLUENZA [None]
  - MOUTH BREATHING [None]
  - NASOPHARYNGITIS [None]
  - PRURITUS [None]
  - PULMONARY CONGESTION [None]
  - RHINORRHOEA [None]
  - UPPER AIRWAY OBSTRUCTION [None]
  - UPPER RESPIRATORY TRACT CONGESTION [None]
